FAERS Safety Report 5140103-X (Version None)
Quarter: 2006Q4

REPORT INFORMATION
  Report Type: 
  Country: None (occurrence: None)
  Receive Date: 20061031
  Receipt Date: 20060412
  Transmission Date: 20070319
  Serious: Yes (Other)
  Sender: FDA-Public Use
  Company Number: US-ROCHE-444322

PATIENT
  Age: 16 Year

DRUGS (3)
  1. ACCUTANE [Suspect]
     Route: 048
     Dates: start: 20060215, end: 20060411
  2. ACCUTANE [Suspect]
     Route: 048
     Dates: start: 20051123, end: 20051215
  3. ACCUTANE [Suspect]
     Dosage: DOSAGE REGIMEN REPORTED AS 40 MG DAILY IN THE MORNING AND 20 MG DAILY IN THE EVENING.
     Route: 048
     Dates: start: 20051216, end: 20060215

REACTIONS (1)
  - ULCERATIVE KERATITIS [None]
